FAERS Safety Report 15036099 (Version 5)
Quarter: 2019Q2

REPORT INFORMATION
  Report Type: Spontaneous
  Country: US (occurrence: US)
  Receive Date: 20180620
  Receipt Date: 20190527
  Transmission Date: 20190711
  Serious: No
  Sender: FDA-Public Use
  Company Number: US-SA-2017SA175277

PATIENT
  Age: 49 Year
  Sex: Male

DRUGS (1)
  1. AUBAGIO [Suspect]
     Active Substance: TERIFLUNOMIDE
     Indication: MULTIPLE SCLEROSIS
     Dosage: 14 MG,QD
     Route: 048
     Dates: start: 20170622

REACTIONS (9)
  - Pain in extremity [Unknown]
  - Cognitive disorder [Unknown]
  - Dizziness [Unknown]
  - Vision blurred [Unknown]
  - Muscular weakness [Unknown]
  - Pain [Unknown]
  - Product dose omission [Unknown]
  - Musculoskeletal stiffness [Not Recovered/Not Resolved]
  - Movement disorder [Not Recovered/Not Resolved]

NARRATIVE: CASE EVENT DATE: 201804
